FAERS Safety Report 17187189 (Version 1)
Quarter: 2019Q4

REPORT INFORMATION
  Report Type: Spontaneous
  Country: US (occurrence: US)
  Receive Date: 20191220
  Receipt Date: 20191220
  Transmission Date: 20200122
  Serious: Yes (Other)
  Sender: FDA-Public Use
  Company Number: US-IMPRIMIS NJOF-2078076

PATIENT

DRUGS (2)
  1. IMPRIMISRX TRI-MOXI [MOXIFLOXACIN\TRIAMCINOLONE] [Suspect]
     Active Substance: MOXIFLOXACIN\TRIAMCINOLONE
  2. IMPRIMISRX EPI-LIDO [EPINEPHRINE\LIDOCAINE] [Suspect]
     Active Substance: EPINEPHRINE\LIDOCAINE

REACTIONS (1)
  - Visual acuity reduced [None]

NARRATIVE: CASE EVENT DATE: 20191105
